FAERS Safety Report 20782186 (Version 1)
Quarter: 2022Q2

REPORT INFORMATION
  Report Type: Spontaneous
  Country: US (occurrence: US)
  Receive Date: 20220504
  Receipt Date: 20220504
  Transmission Date: 20220721
  Serious: Yes (Other)
  Sender: FDA-Public Use
  Company Number: US-GSKCCFUS-Case-01363265_AE-78860

PATIENT
  Age: 17 Year
  Sex: Female

DRUGS (1)
  1. NUCALA [Suspect]
     Active Substance: MEPOLIZUMAB
     Indication: Asthma
     Dosage: UNK

REACTIONS (3)
  - Haemolytic anaemia [Unknown]
  - Thrombocytopenia [Unknown]
  - Jaundice [Unknown]

NARRATIVE: CASE EVENT DATE: 20220426
